FAERS Safety Report 16831311 (Version 2)
Quarter: 2019Q3

REPORT INFORMATION
  Report Type: Spontaneous
  Country: DE (occurrence: DE)
  Receive Date: 20190920
  Receipt Date: 20190920
  Transmission Date: 20191005
  Serious: Yes (Other)
  Sender: FDA-Public Use
  Company Number: PHHY2019DE214279

PATIENT
  Age: 16 Year
  Sex: Male

DRUGS (5)
  1. PREDNISOLONE. [Suspect]
     Active Substance: PREDNISOLONE
     Indication: ACNE FULMINANS
     Dosage: 50 MG, QD
     Route: 065
  2. MINOCYCLINE [Suspect]
     Active Substance: MINOCYCLINE HYDROCHLORIDE
     Indication: ACNE FULMINANS
     Dosage: 100 MG, QD
     Route: 065
  3. FLUCLOXACILLIN [Suspect]
     Active Substance: FLUCLOXACILLIN
     Indication: ACNE FULMINANS
     Dosage: 3 G, QD
     Route: 065
  4. PREDNISOLONE. [Suspect]
     Active Substance: PREDNISOLONE
     Dosage: 20 UNK, UNK
     Route: 065
  5. PREDNISOLONE. [Suspect]
     Active Substance: PREDNISOLONE
     Dosage: 30 UNK, UNK
     Route: 065

REACTIONS (8)
  - Weight increased [Unknown]
  - Cushingoid [Unknown]
  - Lipohypertrophy [Unknown]
  - Rash pustular [Recovered/Resolved]
  - Cushing^s syndrome [Unknown]
  - Acne fulminans [Recovered/Resolved]
  - Nodule [Recovered/Resolved]
  - Product use in unapproved indication [Unknown]
